FAERS Safety Report 17997269 (Version 4)
Quarter: 2022Q3

REPORT INFORMATION
  Report Type: Spontaneous
  Country: US (occurrence: US)
  Receive Date: 20200708
  Receipt Date: 20220809
  Transmission Date: 20221027
  Serious: No
  Sender: FDA-Public Use
  Company Number: US-PFIZER INC-2020261481

PATIENT
  Age: 72 Year
  Sex: Female
  Weight: 81.65 kg

DRUGS (6)
  1. XELJANZ [Suspect]
     Active Substance: TOFACITINIB CITRATE
     Dosage: 5 MG, 2X/DAY (ONE TABLET BY MOUTH TWICE DAILY)
     Route: 048
  2. DIETARY SUPPLEMENT\HERBALS\MILK THISTLE [Concomitant]
     Active Substance: DIETARY SUPPLEMENT\HERBALS\MILK THISTLE
     Dosage: UNK
  3. CHOLINE [Concomitant]
     Active Substance: CHOLINE
     Dosage: UNK
  4. UNSPECIFIED INGREDIENT [Concomitant]
     Active Substance: UNSPECIFIED INGREDIENT
     Dosage: UNK
  5. BROCCOLI BIOS [Concomitant]
     Dosage: UNK
  6. GLYCINE [Concomitant]
     Active Substance: GLYCINE
     Dosage: UNK

REACTIONS (5)
  - Herpes zoster [Unknown]
  - Hepatic enzyme abnormal [Unknown]
  - Hepatic steatosis [Unknown]
  - Cough [Unknown]
  - Hepatic enzyme increased [Unknown]
